FAERS Safety Report 8510147-6 (Version None)
Quarter: 2012Q2

REPORT INFORMATION
  Report Type: 
  Country: None (occurrence: None)
  Receive Date: 20120405
  Receipt Date: 20090713
  Transmission Date: 20120825
  Serious: Yes (Other)
  Sender: FDA-Public Use
  Company Number: PHEH2009US07492

PATIENT
  Sex: Female

DRUGS (3)
  1. ALENDRONATE SODIUM [Concomitant]
  2. RECLAST [Suspect]
     Indication: OSTEOPOROSIS
     Dosage: 5 MG, ONCE/SINGLE, INFUSION
     Dates: start: 20080101, end: 20080101
  3. ORENCIA [Concomitant]

REACTIONS (3)
  - OSTEONECROSIS [None]
  - GINGIVITIS [None]
  - DENTAL DISCOMFORT [None]
